FAERS Safety Report 5924563-X (Version None)
Quarter: 2008Q4

REPORT INFORMATION
  Report Type: 
  Country: None (occurrence: None)
  Receive Date: 20081020
  Receipt Date: 20081010
  Transmission Date: 20090506
  Serious: Yes (Hospitalization, Other)
  Sender: FDA-Public Use
  Company Number: US-AMGEN-QUU313127

PATIENT
  Sex: Male

DRUGS (2)
  1. ENBREL [Suspect]
     Indication: RHEUMATOID ARTHRITIS
     Route: 058
     Dates: start: 20001201
  2. ARAVA [Concomitant]

REACTIONS (16)
  - AMPUTATION REVISION [None]
  - ANKLE OPERATION [None]
  - ARTHRALGIA [None]
  - EXOSTOSIS [None]
  - FAILURE OF IMPLANT [None]
  - HEPATIC ENZYME ABNORMAL [None]
  - HIP ARTHROPLASTY [None]
  - IMPAIRED HEALING [None]
  - INFECTION [None]
  - JOINT INJURY [None]
  - KNEE ARTHROPLASTY [None]
  - LEG AMPUTATION [None]
  - OSTEOARTHRITIS [None]
  - SHOULDER ARTHROPLASTY [None]
  - TENDON OPERATION [None]
  - WOUND ABSCESS [None]
